FAERS Safety Report 10503330 (Version 5)
Quarter: 2014Q4

REPORT INFORMATION
  Report Type: Spontaneous
  Country: US (occurrence: US)
  Receive Date: 20141008
  Receipt Date: 20141124
  Transmission Date: 20150528
  Serious: Yes (Other)
  Sender: FDA-Public Use
  Company Number: US-UNITED THERAPEUTICS-UNT-2014-008544

PATIENT
  Age: 88 Year
  Sex: Female
  Weight: 81.63 kg

DRUGS (2)
  1. ORENITRAM [Suspect]
     Active Substance: TREPROSTINIL
     Indication: COR PULMONALE CHRONIC
     Dosage: 0.25 MG, BID
     Route: 048
     Dates: start: 20140926, end: 201410
  2. ORENITRAM [Suspect]
     Active Substance: TREPROSTINIL
     Indication: PULMONARY HYPERTENSION

REACTIONS (9)
  - Dizziness [Recovered/Resolved with Sequelae]
  - Blood pressure increased [Unknown]
  - Headache [Recovered/Resolved with Sequelae]
  - Confusional state [Unknown]
  - Diarrhoea [Unknown]
  - Malaise [Recovered/Resolved with Sequelae]
  - Pain [Unknown]
  - Heart rate increased [Unknown]
  - Therapy cessation [Unknown]

NARRATIVE: CASE EVENT DATE: 201409
